FAERS Safety Report 11230302 (Version 1)
Quarter: 2015Q2

REPORT INFORMATION
  Report Type: Spontaneous
  Country: US (occurrence: None)
  Receive Date: 20150629
  Receipt Date: 20150629
  Transmission Date: 20150821
  Serious: Yes (Hospitalization)
  Sender: FDA-Public Use
  Company Number: 2015US-099510

PATIENT
  Age: 69 Year
  Sex: Male

DRUGS (5)
  1. MYCOPHENOLATE (MYCOPHENOLATE MOFETIL) (500 MILLIGRAM, UNKNOWN) [Suspect]
     Active Substance: MYCOPHENOLIC ACID
     Indication: PEMPHIGUS
  2. CYCLOPHOSPHENIDE [Suspect]
     Active Substance: CYCLOPHOSPHAMIDE
     Indication: PEMPHIGUS
     Route: 042
  3. PREDNISONE (PREDNISONE) UNKNOWN [Suspect]
     Active Substance: PREDNISONE
     Indication: PEMPHIGUS
  4. MYCOPHENOLATE (MYCOPHENOLATE MOFETIL) (500 MILLIGRAM, UNKNOWN) [Suspect]
     Active Substance: MYCOPHENOLIC ACID
     Indication: PEMPHIGUS
  5. WARFARIN [Concomitant]
     Active Substance: WARFARIN

REACTIONS (6)
  - Treatment failure [None]
  - Herpes zoster disseminated [None]
  - Anaemia [None]
  - Deep vein thrombosis [None]
  - Embolism [None]
  - Duodenal ulcer haemorrhage [None]
